FAERS Safety Report 5983084-9 (Version None)
Quarter: 2008Q4

REPORT INFORMATION
  Report Type: 
  Country: None (occurrence: None)
  Receive Date: 20081208
  Receipt Date: 20081201
  Transmission Date: 20090506
  Serious: Yes (Death, Hospitalization)
  Sender: FDA-Public Use
  Company Number: DE-CELGENEUS-062-C5013-07070359

PATIENT
  Sex: Female
  Weight: 60 kg

DRUGS (3)
  1. REVLIMID [Suspect]
     Indication: MULTIPLE MYELOMA
     Route: 048
     Dates: start: 20070329, end: 20070708
  2. DEXAMETHASONE [Suspect]
     Indication: MULTIPLE MYELOMA
     Route: 048
     Dates: start: 20070329, end: 20070707
  3. DIFLUCAN [Concomitant]
     Indication: ANTIBIOTIC PROPHYLAXIS
     Route: 051
     Dates: end: 20070715

REACTIONS (3)
  - EPIDERMOLYSIS BULLOSA [None]
  - MULTI-ORGAN FAILURE [None]
  - SEPSIS [None]
